FAERS Safety Report 9290604 (Version 2)
Quarter: 2013Q2

REPORT INFORMATION
  Report Type: Spontaneous
  Country: GB (occurrence: GB)
  Receive Date: 20130515
  Receipt Date: 20130607
  Transmission Date: 20140414
  Serious: Yes (Hospitalization, Other)
  Sender: FDA-Public Use
  Company Number: GB-BANPHARM-20131292

PATIENT
  Age: 61 Year
  Sex: Male
  Weight: 80.2 kg

DRUGS (6)
  1. IBUPROFEN UNKNOWN PRODUCT [Suspect]
     Indication: PAIN
     Dates: start: 20130207, end: 20130208
  2. STELARA [Suspect]
     Indication: PSORIASIS
     Dosage: 1 DF, 45 MG,
     Route: 058
     Dates: start: 20121218
  3. STELARA [Suspect]
     Indication: PSORIASIS
     Dosage: 1 DF, 45 MG,
     Route: 058
     Dates: start: 20121120
  4. ANADIN [Concomitant]
  5. CO-TENIDONE [Concomitant]
     Route: 048
     Dates: start: 20100720
  6. LOSARTAN [Concomitant]
     Indication: HYPERTENSION
     Route: 048
     Dates: start: 20100720

REACTIONS (1)
  - Anaphylactic reaction [Recovered/Resolved]
